FAERS Safety Report 8535420 (Version 2)
Quarter: 2012Q4

REPORT INFORMATION
  Report Type: 
  Country: US (occurrence: US)
  Receive Date: 20120430
  Receipt Date: 20120917
  Transmission Date: 20130627
  Serious: No
  Sender: FDA-Public Use
  Company Number: US-PFIZER INC-2012103636

PATIENT
  Age: 60 Year
  Sex: Male
  Weight: 62.13 kg

DRUGS (20)
  1. LYRICA [Suspect]
     Indication: MYALGIA
     Dosage: 100 mg, 3x/day
     Route: 048
     Dates: start: 2009, end: 20120819
  2. LYRICA [Suspect]
     Indication: BACK PAIN
  3. LYRICA [Suspect]
     Indication: NECK PAIN
  4. LYRICA [Suspect]
     Indication: SCIATICA
  5. LYRICA [Suspect]
     Indication: BONE DISORDER
  6. LYRICA [Suspect]
     Indication: ARTHRITIS
  7. LYRICA [Suspect]
     Indication: FIBROMYALGIA
  8. OXYCODONE [Concomitant]
     Dosage: 30 mg daily
  9. OXYCONTIN [Concomitant]
     Dosage: 40 mg daily
  10. METFORMIN [Concomitant]
     Indication: DIABETES MELLITUS
     Dosage: 850 mg, 3x/day
  11. METFORMIN [Concomitant]
     Dosage: UNK
  12. GABAPENTIN [Concomitant]
     Dosage: 800 mg, 3x/day
  13. SIMVASTATIN [Concomitant]
     Dosage: 40 mg, 1x/day
  14. TRAZODONE [Concomitant]
     Dosage: 300 mg, 1x/day
     Route: 048
  15. TERAZOSIN [Concomitant]
     Indication: PROSTATIC DISORDER
     Dosage: 4 mg, 1x/day
  16. OMEPRAZOLE [Concomitant]
     Indication: GASTROOESOPHAGEAL REFLUX DISEASE
     Dosage: 20 mg daily
  17. OMEPRAZOLE [Concomitant]
     Indication: GASTRIC DISORDER
  18. NIACIN [Concomitant]
     Indication: MEDICAL DIET
     Dosage: 5 mg, 2x/day
  19. ASPIRIN [Concomitant]
     Dosage: 81 mg, 1x/day
  20. VENLAFAXINE [Concomitant]
     Dosage: 75 mg, 1x/day

REACTIONS (5)
  - Pain in extremity [Not Recovered/Not Resolved]
  - Neck pain [Not Recovered/Not Resolved]
  - Back pain [Not Recovered/Not Resolved]
  - Pain [Not Recovered/Not Resolved]
  - Malaise [Not Recovered/Not Resolved]
